FAERS Safety Report 6120325-1 (Version None)
Quarter: 2009Q1

REPORT INFORMATION
  Report Type: 
  Country: None (occurrence: None)
  Receive Date: 20090312
  Receipt Date: 20090312
  Transmission Date: 20090719
  Serious: Yes (Other)
  Sender: FDA-Public Use
  Company Number: None

PATIENT
  Sex: Male
  Weight: 77.6 kg

DRUGS (1)
  1. NOVOLOG [Suspect]
     Indication: TYPE 1 DIABETES MELLITUS
     Dosage: 3ML ORANGE FLEXPEN USED 3 TIMES DAILY SQ
     Route: 058

REACTIONS (2)
  - MEDICATION ERROR [None]
  - PRODUCT QUALITY ISSUE [None]
